FAERS Safety Report 4673550-0 (Version None)
Quarter: 2005Q2

REPORT INFORMATION
  Report Type: 
  Country: None (occurrence: None)
  Receive Date: 20050523
  Receipt Date: 20050510
  Transmission Date: 20051028
  Serious: Yes (Other)
  Sender: FDA-Public Use
  Company Number: 2005072670

PATIENT
  Age: 13 Year
  Sex: Female

DRUGS (2)
  1. BENADRYL [Suspect]
     Indication: MULTIPLE SCLEROSIS
     Dosage: 1 ULTRATAB PRN, ORAL
     Route: 048
     Dates: start: 20050401, end: 20050507
  2. LORATADINE [Suspect]
     Dosage: ONE TABLET, PRN (10 MG), ORAL
     Route: 048
     Dates: start: 20050401, end: 20050507

REACTIONS (4)
  - CONVERSION DISORDER [None]
  - DYSKINESIA [None]
  - TREMOR [None]
  - UNRESPONSIVE TO VERBAL STIMULI [None]
